FAERS Safety Report 9611186 (Version 1)
Quarter: 2013Q4

REPORT INFORMATION
  Report Type: Report from Study
  Country: US (occurrence: US)
  Receive Date: 20131009
  Receipt Date: 20131009
  Transmission Date: 20140711
  Serious: No
  Sender: FDA-Public Use
  Company Number: US-009507513-1310USA002083

PATIENT
  Sex: Female
  Weight: 57.6 kg

DRUGS (1)
  1. IMPLANON [Suspect]
     Dosage: UNK
     Dates: start: 20130718, end: 20131003

REACTIONS (2)
  - Fatigue [Unknown]
  - Libido decreased [Unknown]
